FAERS Safety Report 11515855 (Version 2)
Quarter: 2015Q3

REPORT INFORMATION
  Report Type: Spontaneous
  Country: US (occurrence: US)
  Receive Date: 20150916
  Receipt Date: 20150916
  Transmission Date: 20151125
  Serious: Yes (Other)
  Sender: FDA-Public Use
  Company Number: US-ACTAVIS-2015-19210

PATIENT
  Sex: Female

DRUGS (5)
  1. PACLITAXEL (ATLLC) [Suspect]
     Active Substance: PACLITAXEL
     Indication: BREAST CANCER FEMALE
     Dosage: UNK, UNKNOWN
     Route: 065
  2. TAMOXIFEN CITRATE (ACTAVIS LABORATORIES FL) [Suspect]
     Active Substance: TAMOXIFEN CITRATE
     Indication: BREAST CANCER FEMALE
     Dosage: UNK UNK, UNKNOWN
     Route: 065
     Dates: start: 201007, end: 201306
  3. DOXORUBICIN HYDROCHLORIDE (ACTAVIS INC) [Suspect]
     Active Substance: DOXORUBICIN HYDROCHLORIDE
     Indication: BREAST CANCER FEMALE
     Dosage: UNK UNK, UNKNOWN
     Route: 065
  4. DOCETAXEL (ACTAVIS) [Suspect]
     Active Substance: DOCETAXEL
     Indication: BREAST CANCER FEMALE
     Dosage: UNK, UNKNOWN
     Route: 065
  5. CARBOPLATIN (WATSON LABORATORIES) [Suspect]
     Active Substance: CARBOPLATIN
     Indication: BREAST CANCER FEMALE
     Dosage: UNK, UNKNOWN
     Route: 065

REACTIONS (4)
  - Neutropenia [Unknown]
  - Breast cancer metastatic [Not Recovered/Not Resolved]
  - Infusion related reaction [Unknown]
  - Disease progression [Not Recovered/Not Resolved]
